FAERS Safety Report 24992197 (Version 1)
Quarter: 2025Q1

REPORT INFORMATION
  Report Type: Report from Study
  Country: ES (occurrence: ES)
  Receive Date: 20250220
  Receipt Date: 20250220
  Transmission Date: 20250408
  Serious: Yes (Hospitalization, Other)
  Sender: ELI LILLY AND COMPANY
  Company Number: ES-ELI_LILLY_AND_COMPANY-ES202412015716

PATIENT
  Age: 74 Year
  Sex: Female

DRUGS (1)
  1. ABEMACICLIB [Suspect]
     Active Substance: ABEMACICLIB
     Indication: Breast cancer metastatic
     Route: 048
     Dates: start: 20240726, end: 20241217

REACTIONS (4)
  - Anaemia [Recovering/Resolving]
  - Pneumonitis [Recovered/Resolved]
  - Gait disturbance [Recovering/Resolving]
  - Hypoacusis [Unknown]
